FAERS Safety Report 12570219 (Version 1)
Quarter: 2016Q3

REPORT INFORMATION
  Report Type: Spontaneous
  Country: US (occurrence: None)
  Receive Date: 20160718
  Receipt Date: 20160718
  Transmission Date: 20161109
  Serious: Yes (Hospitalization)
  Sender: FDA-Public Use
  Company Number: None

PATIENT
  Age: 48 Year
  Sex: Male
  Weight: 90.72 kg

DRUGS (3)
  1. MORPHINE SULPHATE [Concomitant]
     Active Substance: MORPHINE SULFATE
  2. LEVOFLOXACIN, 750MG, 750 MG [Suspect]
     Active Substance: LEVOFLOXACIN
     Indication: PNEUMONIA
     Dosage: 10 TABLETS ONCE A DAY
     Route: 048
     Dates: start: 20160621, end: 20160629
  3. VALIUM [Concomitant]
     Active Substance: DIAZEPAM

REACTIONS (4)
  - Asthenia [None]
  - Pain [None]
  - Muscle spasms [None]
  - Activities of daily living impaired [None]

NARRATIVE: CASE EVENT DATE: 20160706
